FAERS Safety Report 9223067 (Version 1)
Quarter: 2013Q2

REPORT INFORMATION
  Report Type: Spontaneous
  Country: CH (occurrence: CH)
  Receive Date: 20130410
  Receipt Date: 20130410
  Transmission Date: 20140414
  Serious: Yes (Death)
  Sender: FDA-Public Use
  Company Number: CH-ROCHE-1211891

PATIENT
  Sex: Female

DRUGS (4)
  1. LUCENTIS [Suspect]
     Indication: DIABETIC RETINAL OEDEMA
     Route: 050
     Dates: start: 20130123
  2. LUCENTIS [Suspect]
     Route: 050
     Dates: start: 20130220, end: 20130220
  3. METFORMIN [Concomitant]
     Route: 065
  4. AMLODIPINE [Concomitant]

REACTIONS (1)
  - Death [Fatal]
